FAERS Safety Report 21355414 (Version 1)
Quarter: 2022Q3

REPORT INFORMATION
  Report Type: Spontaneous
  Country: DE (occurrence: DE)
  Receive Date: 20220920
  Receipt Date: 20220920
  Transmission Date: 20221027
  Serious: Yes (Hospitalization)
  Sender: FDA-Public Use
  Company Number: None

PATIENT
  Age: 87 Year
  Sex: Male
  Weight: 97 kg

DRUGS (1)
  1. EDOXABAN [Suspect]
     Active Substance: EDOXABAN
     Indication: Product used for unknown indication
     Dosage: UNK, TABLET
     Route: 048

REACTIONS (8)
  - Dyspnoea exertional [Unknown]
  - Chest discomfort [Unknown]
  - Chest pain [Unknown]
  - Asthenia [Unknown]
  - Fatigue [Unknown]
  - Performance status decreased [Unknown]
  - Anaemia [Unknown]
  - Epistaxis [Unknown]
